FAERS Safety Report 5933151-0 (Version None)
Quarter: 2008Q4

REPORT INFORMATION
  Report Type: 
  Country: None (occurrence: None)
  Receive Date: 20081023
  Receipt Date: 20060314
  Transmission Date: 20090506
  Serious: Yes (Hospitalization, Other)
  Sender: FDA-Public Use
  Company Number: 2006AL001936

PATIENT
  Age: 59 Year
  Sex: Male

DRUGS (5)
  1. IBUPROFEN [Suspect]
     Indication: TOOTHACHE
     Dosage: 400 MG; PO
     Route: 048
     Dates: start: 20060209, end: 20060209
  2. ACETAMINOPHEN [Concomitant]
  3. ASPIRIN [Concomitant]
  4. ADALAT [Concomitant]
  5. RAMIPRIL [Concomitant]

REACTIONS (6)
  - DIZZINESS [None]
  - FEELING HOT [None]
  - HAEMATEMESIS [None]
  - HYPERHIDROSIS [None]
  - PALLOR [None]
  - TREMOR [None]
